FAERS Safety Report 21741061 (Version 1)
Quarter: 2022Q4

REPORT INFORMATION
  Report Type: Spontaneous
  Country: US (occurrence: US)
  Receive Date: 20221216
  Receipt Date: 20221216
  Transmission Date: 20230113
  Serious: No
  Sender: FDA-Public Use
  Company Number: US-AVEO ONCOLOGY-2022-AVEO-US000559

PATIENT

DRUGS (8)
  1. FOTIVDA [Suspect]
     Active Substance: TIVOZANIB HYDROCHLORIDE
     Indication: Renal cell carcinoma
     Dosage: 0.89 MG, DAILY FOR 21 DAYS WITH 7 DAYS OFF (28-DAY CYCLE)
     Route: 048
     Dates: start: 20220323
  2. AMLODIPINE [Concomitant]
     Active Substance: AMLODIPINE BESYLATE
  3. FOLIC ACID [Concomitant]
     Active Substance: FOLIC ACID
  4. GABAPENTIN [Concomitant]
     Active Substance: GABAPENTIN
  5. LEVOTHYROXINE [Concomitant]
     Active Substance: LEVOTHYROXINE
  6. MAGNESIUM [Concomitant]
     Active Substance: MAGNESIUM
  7. TAMSULOSIN [Concomitant]
     Active Substance: TAMSULOSIN
  8. ZOLOFT [Concomitant]
     Active Substance: SERTRALINE HYDROCHLORIDE

REACTIONS (4)
  - Fatigue [Unknown]
  - Diarrhoea [Unknown]
  - Nausea [Unknown]
  - Abdominal discomfort [Unknown]
